FAERS Safety Report 17867843 (Version 1)
Quarter: 2020Q2

REPORT INFORMATION
  Report Type: Spontaneous
  Country: ES (occurrence: ES)
  Receive Date: 20200606
  Receipt Date: 20200606
  Transmission Date: 20200714
  Serious: Yes (Hospitalization, Other)
  Sender: FDA-Public Use
  Company Number: ES-AUROBINDO-AUR-APL-2020-026685

PATIENT
  Age: 68 Year
  Sex: Female

DRUGS (6)
  1. ALOPURINOL [Concomitant]
     Active Substance: ALLOPURINOL
     Indication: GOUT
     Route: 048
     Dates: start: 20191009, end: 20191111
  2. IBUPROFEN. [Suspect]
     Active Substance: IBUPROFEN
     Indication: PAIN
     Route: 048
     Dates: start: 20191009, end: 20191108
  3. DIGOXINA [Concomitant]
     Active Substance: DIGOXIN
     Indication: ATRIAL FIBRILLATION
     Route: 048
     Dates: start: 20180711, end: 20191111
  4. COLCHICINA [Concomitant]
     Active Substance: COLCHICINE
     Indication: GOUT
     Route: 048
     Dates: start: 20181209, end: 20191113
  5. LIXIANA [Concomitant]
     Active Substance: EDOXABAN TOSYLATE
     Indication: ATRIAL FIBRILLATION
     Route: 048
     Dates: start: 20191009, end: 20191111
  6. METFORMINA [Concomitant]
     Active Substance: METFORMIN HYDROCHLORIDE
     Indication: DIABETES MELLITUS
     Route: 048
     Dates: start: 20180103, end: 20191111

REACTIONS (2)
  - Chronic kidney disease [Recovered/Resolved]
  - Cardiac failure [Recovered/Resolved]

NARRATIVE: CASE EVENT DATE: 20191109
